FAERS Safety Report 7199320-X (Version None)
Quarter: 2010Q4

REPORT INFORMATION
  Report Type: 
  Country: None (occurrence: None)
  Receive Date: 20101223
  Receipt Date: 20101223
  Transmission Date: 20110411
  Serious: Yes (Hospitalization)
  Sender: FDA-Public Use
  Company Number: None

PATIENT
  Age: 79 Year
  Sex: Male
  Weight: 77 kg

DRUGS (1)
  1. SIPULEUCIL-T -PROVENGE- 50 MILLION CELL/250 ML NS DENDREON [Suspect]
     Indication: PROSTATE CANCER METASTATIC
     Dosage: 250 ML ONCE IV DRIP
     Dates: start: 20101220, end: 20101220

REACTIONS (1)
  - APHASIA [None]
